FAERS Safety Report 25268582 (Version 1)
Quarter: 2025Q2

REPORT INFORMATION
  Report Type: Spontaneous
  Country: US (occurrence: None)
  Receive Date: 20250503
  Receipt Date: 20250503
  Transmission Date: 20250716
  Serious: Yes (Death)
  Sender: FDA-CTU
  Company Number: None

PATIENT
  Age: 66 Year
  Sex: Female

DRUGS (1)
  1. LENALIDOMIDE [Suspect]
     Active Substance: LENALIDOMIDE
     Indication: Plasma cell myeloma
     Dosage: 2.5MG QD ORAL
     Route: 048
     Dates: start: 20190429

REACTIONS (9)
  - Acute myocardial infarction [None]
  - Haemodynamic instability [None]
  - Ejection fraction [None]
  - Bradycardia [None]
  - Ventricular tachycardia [None]
  - Hyperkalaemia [None]
  - Renal tubular necrosis [None]
  - Cardiac arrest [None]
  - Acute kidney injury [None]

NARRATIVE: CASE EVENT DATE: 20240107
